FAERS Safety Report 9294137 (Version 1)
Quarter: 2013Q1

REPORT INFORMATION
  Report Type: Spontaneous
  Country: US (occurrence: None)
  Receive Date: 20121226
  Receipt Date: 20121226
  Transmission Date: 20140127
  Serious: Yes (Hospitalization)
  Sender: FDA-Public Use
  Company Number: 357350

PATIENT
  Age: 32 Year
  Sex: Female
  Weight: 53.1 kg

DRUGS (3)
  1. LEVEMIR FLEXPEN [Suspect]
     Indication: TYPE 1 DIABETES MELLITUS
     Dosage: 18 U, DAILY AT NIGHT
     Route: 058
     Dates: start: 20120724, end: 20120724
  2. NOVOLOG (INSULIN ASPART) SOLUTION FOR INJECTION [Concomitant]
  3. LEVOTHYROXINE (LEVOTHYROXINE) [Concomitant]

REACTIONS (3)
  - Device malfunction [None]
  - Maternal exposure during pregnancy [None]
  - Blood glucose increased [None]
